FAERS Safety Report 7712383-5 (Version None)
Quarter: 2011Q3

REPORT INFORMATION
  Report Type: 
  Country: None (occurrence: None)
  Receive Date: 20110826
  Receipt Date: 20110818
  Transmission Date: 20111222
  Serious: Yes (Death)
  Sender: FDA-Public Use
  Company Number: FR-ROCHE-798056

PATIENT
  Sex: Male

DRUGS (7)
  1. SIMAVASTATIN [Suspect]
     Route: 048
     Dates: start: 20110401, end: 20110624
  2. AVASTIN [Suspect]
     Dosage: FREQUENCY:IN 1 ADMINISTRATION
     Route: 042
     Dates: start: 20110307, end: 20110428
  3. LANTUS [Concomitant]
  4. LANSOPRAZOLE [Concomitant]
  5. APIDRA [Concomitant]
  6. RAMIPRIL [Concomitant]
  7. ASPIRIN [Concomitant]

REACTIONS (1)
  - HEPATITIS FULMINANT [None]
